FAERS Safety Report 4288499-5 (Version None)
Quarter: 2004Q1

REPORT INFORMATION
  Report Type: 
  Country: None (occurrence: None)
  Receive Date: 20040205
  Receipt Date: 20040120
  Transmission Date: 20041129
  Serious: Yes (Hospitalization, Other)
  Sender: FDA-Public Use
  Company Number: USA040156972

PATIENT
  Age: 80 Year
  Sex: Female

DRUGS (1)
  1. HUMULIN 70/30 [Suspect]
     Dosage: 40 U/DAY

REACTIONS (2)
  - BLOOD GLUCOSE DECREASED [None]
  - INTESTINAL OBSTRUCTION [None]
